FAERS Safety Report 14130616 (Version 1)
Quarter: 2017Q4

REPORT INFORMATION
  Report Type: Spontaneous
  Country: FR (occurrence: FR)
  Receive Date: 20171026
  Receipt Date: 20171026
  Transmission Date: 20180321
  Serious: Yes (Hospitalization)
  Sender: FDA-Public Use
  Company Number: FR-MERCK KGAA-2031623

PATIENT
  Age: 64 Year
  Sex: Female

DRUGS (1)
  1. NOVOTHYROX [Suspect]
     Active Substance: LEVOTHYROXINE SODIUM
     Indication: HYPOTHYROIDISM
     Route: 048
     Dates: start: 20170626, end: 20170824

REACTIONS (8)
  - Dyspepsia [Recovering/Resolving]
  - Arrhythmia [Recovering/Resolving]
  - Pain [Recovering/Resolving]
  - Hot flush [Recovering/Resolving]
  - Product formulation issue [Recovered/Resolved]
  - Dysphagia [Recovering/Resolving]
  - Palpitations [Recovering/Resolving]
  - Weight increased [Recovering/Resolving]

NARRATIVE: CASE EVENT DATE: 20170708
